FAERS Safety Report 8401039-1 (Version None)
Quarter: 2012Q2

REPORT INFORMATION
  Report Type: 
  Country: None (occurrence: None)
  Receive Date: 20120525
  Receipt Date: 20120515
  Transmission Date: 20120825
  Serious: Yes (Disabling, Other)
  Sender: FDA-Public Use
  Company Number: 1202-069

PATIENT
  Age: 68 Year
  Sex: Male
  Weight: 118.3888 kg

DRUGS (15)
  1. METFFORMIN HYDROCHLORIDE [Concomitant]
  2. WELCHOL [Concomitant]
  3. MULTIVITAMIN (MULTIVITAMIN /00831701/) [Concomitant]
  4. NIASPAN [Concomitant]
  5. LOVASTATIN [Concomitant]
  6. VITAMIN D [Concomitant]
  7. EYLEA [Suspect]
     Indication: MACULAR DEGENERATION
     Dosage: 2 MG, ONCE, INTRAVITREAL
     Dates: start: 20120106, end: 20120106
  8. BUPROPION XL (BUPROPION) [Concomitant]
  9. NEXIUM [Concomitant]
  10. BYETTA [Concomitant]
  11. FISH OIL (FISH OIL) [Concomitant]
  12. ASPIRIN [Concomitant]
  13. LANTUS [Concomitant]
  14. MESTINON [Concomitant]
  15. MAGNESIUM (MAGNESIUM) [Concomitant]

REACTIONS (1)
  - MYASTHENIA GRAVIS [None]
